FAERS Safety Report 4423633-5 (Version None)
Quarter: 2004Q3

REPORT INFORMATION
  Report Type: 
  Country: None (occurrence: None)
  Receive Date: 20040805
  Receipt Date: 20040720
  Transmission Date: 20050211
  Serious: Yes (Hospitalization)
  Sender: FDA-Public Use
  Company Number: DSA_60434_2004

PATIENT
  Sex: Female

DRUGS (2)
  1. DIHYDERGOT [Suspect]
     Indication: HEADACHE
     Dates: start: 20040615
  2. LETROX [Concomitant]

REACTIONS (15)
  - ABNORMAL BEHAVIOUR [None]
  - AMNESIA [None]
  - ASTHENIA [None]
  - CHEST DISCOMFORT [None]
  - CONFUSIONAL STATE [None]
  - CRYING [None]
  - DISORIENTATION [None]
  - DYSPNOEA [None]
  - MENTAL DISORDER [None]
  - MIGRAINE WITH AURA [None]
  - NASAL CONGESTION [None]
  - NASAL OEDEMA [None]
  - NAUSEA [None]
  - SCREAMING [None]
  - VOMITING [None]
